FAERS Safety Report 16695446 (Version 2)
Quarter: 2019Q3

REPORT INFORMATION
  Report Type: Spontaneous
  Country: JP (occurrence: JP)
  Receive Date: 20190813
  Receipt Date: 20190918
  Transmission Date: 20191004
  Serious: No
  Sender: FDA-Public Use
  Company Number: JP-BEH-2019105453

PATIENT
  Age: 30 Year
  Sex: Female

DRUGS (2)
  1. HIZENTRA [Suspect]
     Active Substance: HUMAN IMMUNOGLOBULIN G
     Indication: HYPOGAMMAGLOBULINAEMIA
     Dosage: 4 GRAM, SINGLE
     Route: 058
     Dates: start: 20190801, end: 20190801
  2. HIZENTRA [Suspect]
     Active Substance: HUMAN IMMUNOGLOBULIN G
     Dosage: 1 GRAM, SINGLE
     Route: 058
     Dates: start: 20190801, end: 20190801

REACTIONS (4)
  - Infusion site induration [Unknown]
  - Infusion site pruritus [Unknown]
  - Infusion site erythema [Recovering/Resolving]
  - Infusion site swelling [Unknown]

NARRATIVE: CASE EVENT DATE: 20190801
